FAERS Safety Report 16837382 (Version 3)
Quarter: 2021Q2

REPORT INFORMATION
  Report Type: Report from Study
  Country: None (occurrence: BR)
  Receive Date: 20190923
  Receipt Date: 20210514
  Transmission Date: 20210716
  Serious: Yes (Other)
  Sender: FDA-Public Use
  Company Number: BR-ABBVIE-19K-020-2930193-00

PATIENT
  Age: 58 Year
  Sex: Female
  Weight: 78 kg

DRUGS (10)
  1. ESCITALOPRAM OXALATE. [Concomitant]
     Active Substance: ESCITALOPRAM OXALATE
     Indication: ANXIETY
     Dosage: 1 IN THE MORNING?START DATE? BEFORE 2011
     Route: 048
  2. CONCARDIO [Concomitant]
     Active Substance: BISOPROLOL FUMARATE
     Indication: CORONARY ARTERIAL STENT INSERTION
     Dosage: IN THE MORNING
     Route: 048
     Dates: start: 2016
  3. AAS [Concomitant]
     Active Substance: ASPIRIN
     Indication: CORONARY ARTERIAL STENT INSERTION
     Dosage: IN THE MORNING
     Route: 048
     Dates: start: 2016
  4. BRASART HCT [Concomitant]
     Active Substance: HYDROCHLOROTHIAZIDE\VALSARTAN
     Indication: HYPERTENSION
     Dosage: 160MG / 12,5MG?1 TABLET EVERY MORNING
     Route: 048
     Dates: start: 2001
  5. AMLODIPINE BESYLATE. [Concomitant]
     Active Substance: AMLODIPINE BESYLATE
     Indication: HYPERTENSION
     Dosage: 1 TABLET EVERY MORNING
     Route: 048
     Dates: start: 2001
  6. HUMIRA [Suspect]
     Active Substance: ADALIMUMAB
     Indication: PSORIASIS
     Dosage: LOADING DOSE
     Route: 058
     Dates: start: 20180924, end: 20180924
  7. HUMIRA [Suspect]
     Active Substance: ADALIMUMAB
     Route: 058
     Dates: end: 2021
  8. PRESSAT [Concomitant]
     Active Substance: AMLODIPINE BESYLATE
     Indication: HYPERTENSION
     Dosage: EVERY NIGHT
     Route: 048
     Dates: start: 2001
  9. PLENANCE [Concomitant]
     Active Substance: ROSUVASTATIN
     Indication: BLOOD CHOLESTEROL INCREASED
     Route: 048
     Dates: start: 2021
  10. ALPRAZOLAM. [Concomitant]
     Active Substance: ALPRAZOLAM
     Indication: ANXIETY
     Dosage: IN THE AFTERNOON?START DATE? BEFORE 2011
     Route: 048

REACTIONS (3)
  - Bedridden [Unknown]
  - Bone pain [Not Recovered/Not Resolved]
  - Pain [Unknown]

NARRATIVE: CASE EVENT DATE: 201909
